FAERS Safety Report 4828230-5 (Version None)
Quarter: 2005Q4

REPORT INFORMATION
  Report Type: 
  Country: None (occurrence: None)
  Receive Date: 20051115
  Receipt Date: 20050118
  Transmission Date: 20060501
  Serious: No
  Sender: FDA-Public Use
  Company Number: US-BRISTOL-MYERS SQUIBB COMPANY-12830063

PATIENT
  Age: 72 Year
  Sex: Male
  Weight: 56 kg

DRUGS (5)
  1. SUSTIVA [Suspect]
     Indication: HIV INFECTION
     Route: 048
     Dates: start: 20041210
  2. TRUVADA [Concomitant]
  3. ALLEGRA [Concomitant]
  4. PROSCAR [Concomitant]
  5. VITAMINS [Concomitant]

REACTIONS (2)
  - PRURITUS [None]
  - RASH [None]
